FAERS Safety Report 15763341 (Version 4)
Quarter: 2019Q1

REPORT INFORMATION
  Report Type: Report from Study
  Country: None (occurrence: SE)
  Receive Date: 20181227
  Receipt Date: 20190204
  Transmission Date: 20190417
  Serious: Yes (Hospitalization)
  Sender: FDA-Public Use
  Company Number: SE-ABBVIE-18S-150-2599547-00

PATIENT
  Age: 63 Year
  Sex: Female

DRUGS (2)
  1. DUODOPA [Suspect]
     Active Substance: CARBIDOPA\LEVODOPA
     Indication: PARKINSON^S DISEASE
     Route: 050
     Dates: start: 20181105, end: 2018
  2. DUODOPA [Suspect]
     Active Substance: CARBIDOPA\LEVODOPA
     Dosage: MD: 5.5 ML CD: 2.2 ML/H XD: 0.7 ML
     Route: 050
     Dates: start: 20181217, end: 20181223

REACTIONS (9)
  - Abdominal infection [Recovered/Resolved]
  - Flatulence [Unknown]
  - Abdominal pain upper [Recovering/Resolving]
  - Abdominal tenderness [Recovering/Resolving]
  - Stoma site pain [Unknown]
  - Abscess [Not Recovered/Not Resolved]
  - Pleural effusion [Not Recovered/Not Resolved]
  - Abdominal pain [Not Recovered/Not Resolved]
  - Stoma site discharge [Not Recovered/Not Resolved]

NARRATIVE: CASE EVENT DATE: 201812
